FAERS Safety Report 21822540 (Version 2)
Quarter: 2023Q1

REPORT INFORMATION
  Report Type: Spontaneous
  Country: DE (occurrence: DE)
  Receive Date: 20230105
  Receipt Date: 20230130
  Transmission Date: 20230418
  Serious: Yes (Death, Life-Threatening, Other)
  Sender: FDA-Public Use
  Company Number: DE-ASTELLAS-2022US046220

PATIENT
  Age: 16 Year
  Sex: Male

DRUGS (13)
  1. TACROLIMUS [Interacting]
     Active Substance: TACROLIMUS
     Indication: Prophylaxis against graft versus host disease
     Dosage: UNK UNK, UNKNOWN FREQ. (ON DAY +23)
     Route: 065
  2. VORICONAZOLE [Interacting]
     Active Substance: VORICONAZOLE
     Indication: Product used for unknown indication
     Dosage: 6 MG/KG, TWICE DAILY (LOADING DOSE)
     Route: 042
  3. VORICONAZOLE [Interacting]
     Active Substance: VORICONAZOLE
     Dosage: 4 MG/KG, TWICE DAILY (MAINTENANCE DOSE)
     Route: 042
  4. VORICONAZOLE [Interacting]
     Active Substance: VORICONAZOLE
     Dosage: 12 MG/KG, UNKNOWN FREQ. (INCREASED DOSE)
     Route: 042
  5. MICAFUNGIN [Concomitant]
     Active Substance: MICAFUNGIN
     Indication: Antibiotic prophylaxis
     Route: 065
  6. CYCLOPHOSPHAMIDE [Concomitant]
     Active Substance: CYCLOPHOSPHAMIDE
     Indication: Allogenic stem cell transplantation
     Route: 065
  7. LAPINE T-LYMPHOCYTE IMMUNE GLOBULIN [Concomitant]
     Active Substance: LAPINE T-LYMPHOCYTE IMMUNE GLOBULIN
     Indication: Allogenic stem cell transplantation
     Route: 065
  8. FOSCARNET [Concomitant]
     Active Substance: FOSCARNET
     Indication: Antibiotic prophylaxis
     Dosage: UNK UNK, UNKNOWN FREQ.
     Route: 065
  9. ACYCLOVIR [Concomitant]
     Active Substance: ACYCLOVIR
     Indication: Antibiotic prophylaxis
     Dosage: UNK UNK, UNKNOWN FREQ.
     Route: 065
  10. METHOTREXATE [Concomitant]
     Active Substance: METHOTREXATE
     Indication: Prophylaxis against graft versus host disease
     Dosage: 10 MG/M2, ONCE DAILY (ON DAYS +2, +4, +7)
     Route: 065
  11. CYCLOSPORINE [Concomitant]
     Active Substance: CYCLOSPORINE
     Indication: Prophylaxis against graft versus host disease
     Dosage: UNK UNK, UNKNOWN FREQ.
     Route: 065
  12. MEROPENEM [Concomitant]
     Active Substance: MEROPENEM
     Indication: Antibiotic therapy
     Dosage: UNK UNK, UNKNOWN FREQ.
     Route: 065
  13. TEICOPLANIN [Concomitant]
     Active Substance: TEICOPLANIN
     Indication: Antibiotic therapy
     Dosage: UNK UNK, UNKNOWN FREQ.
     Route: 065

REACTIONS (7)
  - Fusarium infection [Fatal]
  - Systemic mycosis [Fatal]
  - Capillary leak syndrome [Unknown]
  - Acute kidney injury [Unknown]
  - Uraemic encephalopathy [Unknown]
  - Drug interaction [Unknown]
  - Off label use [Unknown]
